FAERS Safety Report 25602617 (Version 2)
Quarter: 2025Q3

REPORT INFORMATION
  Report Type: Spontaneous
  Country: US (occurrence: US)
  Receive Date: 20250724
  Receipt Date: 20250821
  Transmission Date: 20251020
  Serious: No
  Sender: ROCHE
  Company Number: US-ROCHE-10000341562

PATIENT
  Age: 65 Year
  Sex: Female
  Weight: 62.1 kg

DRUGS (3)
  1. ACTEMRA [Suspect]
     Active Substance: TOCILIZUMAB
     Indication: Giant cell arteritis
     Dosage: STRENGTH:162MG/0.9M
     Route: 058
     Dates: start: 202506
  2. ACTEMRA [Suspect]
     Active Substance: TOCILIZUMAB
     Indication: Rheumatoid arthritis
  3. HUMIRA [Concomitant]
     Active Substance: ADALIMUMAB

REACTIONS (3)
  - Injection site pain [Unknown]
  - Exposure via skin contact [Unknown]
  - Device defective [Unknown]

NARRATIVE: CASE EVENT DATE: 20250711
